FAERS Safety Report 23909054 (Version 1)
Quarter: 2024Q2

REPORT INFORMATION
  Report Type: Report from Study
  Country: AU (occurrence: AU)
  Receive Date: 20240528
  Receipt Date: 20240528
  Transmission Date: 20240716
  Serious: Yes (Hospitalization)
  Sender: FDA-Public Use
  Company Number: AU-MYLANLABS-2024M1048068

PATIENT
  Age: 76 Year
  Sex: Male

DRUGS (8)
  1. QUETIAPINE [Suspect]
     Active Substance: QUETIAPINE
     Indication: Neuropsychological symptoms
     Dosage: 400 MILLIGRAM, QD
     Route: 065
  2. VALPROIC ACID [Suspect]
     Active Substance: VALPROIC ACID
     Indication: Neuropsychological symptoms
     Dosage: UNK
     Route: 065
  3. FLUOXETINE [Suspect]
     Active Substance: FLUOXETINE HYDROCHLORIDE
     Indication: Neuropsychological symptoms
     Dosage: 20 MILLIGRAM
     Route: 065
  4. HALOPERIDOL [Suspect]
     Active Substance: HALOPERIDOL
     Indication: Neuropsychological symptoms
     Dosage: 5 MILLIGRAM, QD
     Route: 065
  5. MEMANTINE [Suspect]
     Active Substance: MEMANTINE
     Indication: Neuropsychological symptoms
     Dosage: 15 MILLIGRAM
     Route: 065
  6. RIVASTIGMINE [Suspect]
     Active Substance: RIVASTIGMINE
     Indication: Neuropsychological symptoms
     Dosage: 9.5 MILLIGRAM
     Route: 065
  7. CARBAMAZEPINE [Suspect]
     Active Substance: CARBAMAZEPINE
     Indication: Neuropsychological symptoms
     Dosage: UNK
     Route: 065
  8. PRAZOSIN [Suspect]
     Active Substance: PRAZOSIN
     Indication: Neuropsychological symptoms
     Dosage: UNK
     Route: 065

REACTIONS (2)
  - Drug ineffective for unapproved indication [Unknown]
  - Off label use [Unknown]
